FAERS Safety Report 4679159-7 (Version None)
Quarter: 2005Q2

REPORT INFORMATION
  Report Type: 
  Country: None (occurrence: None)
  Receive Date: 20050526
  Receipt Date: 20050323
  Transmission Date: 20051028
  Serious: Yes (Hospitalization, Other)
  Sender: FDA-Public Use
  Company Number: WAES 0503USA04226

PATIENT
  Sex: Male

DRUGS (1)
  1. VYTORIN [Suspect]
     Indication: CARDIAC DISORDER
     Dosage: UNK/UNK/PO
     Route: 048

REACTIONS (1)
  - PANCREATITIS [None]
